FAERS Safety Report 22262396 (Version 1)
Quarter: 2023Q2

REPORT INFORMATION
  Report Type: Spontaneous
  Country: DE (occurrence: None)
  Receive Date: 20230428
  Receipt Date: 20230428
  Transmission Date: 20230721
  Serious: Yes (Hospitalization, Other)
  Sender: FDA-Public Use
  Company Number: None

PATIENT
  Age: 35 Year
  Sex: Female
  Weight: 55 kg

DRUGS (10)
  1. LUVERIS [Suspect]
     Active Substance: LUTROPIN ALFA
     Indication: Assisted reproductive technology
     Dosage: UNIT DOSE: 75 (UNIT UNSPECIFIED), 1 TIME DAILY
     Route: 058
     Dates: start: 20190506, end: 20190511
  2. LUVERIS [Suspect]
     Active Substance: LUTROPIN ALFA
     Indication: Controlled ovarian stimulation
  3. FOLLITROPIN BETA [Suspect]
     Active Substance: FOLLITROPIN BETA
     Indication: Assisted reproductive technology
     Dosage: PUREGON PEN?UNIT DOSE: 125 (UNIT UNSPECIFIED), 1 TIME DAILY, TOTAL DOSE: 1700
     Route: 058
     Dates: start: 20190430, end: 20190511
  4. FOLLITROPIN BETA [Suspect]
     Active Substance: FOLLITROPIN BETA
     Indication: Controlled ovarian stimulation
  5. ORGALUTRAN [Suspect]
     Active Substance: GANIRELIX ACETATE
     Indication: Assisted reproductive technology
     Dosage: UNIT DOSE: 0.25 (UNIT UNSPECIFIED), 1 TIME DAILY, TOTAL DOSE: 1.75
     Route: 058
     Dates: start: 20190507, end: 20190511
  6. ORGALUTRAN [Suspect]
     Active Substance: GANIRELIX ACETATE
     Indication: Therapeutic ovarian suppression
  7. PROGESTERONE [Suspect]
     Active Substance: PROGESTERONE
     Indication: Assisted reproductive technology
     Dosage: 200 MG, 3 TIMES DAILY, TILL 12TH WEEK OF PREGNANCY
     Route: 067
     Dates: start: 20190513
  8. PROGESTERONE [Suspect]
     Active Substance: PROGESTERONE
     Indication: Luteal phase deficiency
  9. GONADOTROPHIN, CHORIONIC [Suspect]
     Active Substance: GONADOTROPHIN, CHORIONIC
     Indication: Assisted reproductive technology
     Dosage: UNIT DOSE:5000 (UNIT UNSPECIFIED), ONCE/SINGLE
     Route: 058
     Dates: start: 20190511, end: 20190511
  10. GONADOTROPHIN, CHORIONIC [Suspect]
     Active Substance: GONADOTROPHIN, CHORIONIC
     Indication: Ovulation induction

REACTIONS (1)
  - Ovarian hyperstimulation syndrome [Recovered/Resolved]

NARRATIVE: CASE EVENT DATE: 20190526
